FAERS Safety Report 5979619-2 (Version None)
Quarter: 2008Q4

REPORT INFORMATION
  Report Type: 
  Country: None (occurrence: None)
  Receive Date: 20081204
  Receipt Date: 20081124
  Transmission Date: 20090506
  Serious: Yes (Other)
  Sender: FDA-Public Use
  Company Number: NL-WATSON-2008-06974

PATIENT
  Age: 7 Year
  Sex: Female

DRUGS (4)
  1. FIORICET [Suspect]
     Indication: PYREXIA
     Dosage: 75 MG/KG, DAILY
  2. VALPROIC ACID                      /00228502/ [Interacting]
     Indication: EPILEPSY
  3. STIRIPENTOL [Concomitant]
     Indication: EPILEPSY
  4. CLOBAZAM [Concomitant]
     Indication: EPILEPSY

REACTIONS (2)
  - DRUG INTERACTION [None]
  - HEPATOTOXICITY [None]
